FAERS Safety Report 24272823 (Version 2)
Quarter: 2025Q1

REPORT INFORMATION
  Report Type: Spontaneous
  Country: US (occurrence: US)
  Receive Date: 20240902
  Receipt Date: 20250120
  Transmission Date: 20250409
  Serious: No
  Sender: ALEXION PHARMACEUTICALS
  Company Number: 2024A197967

PATIENT
  Age: 85 Year

DRUGS (8)
  1. BYDUREON [Suspect]
     Active Substance: EXENATIDE
  2. BYDUREON [Suspect]
     Active Substance: EXENATIDE
     Route: 042
  3. BYDUREON [Suspect]
     Active Substance: EXENATIDE
  4. BYDUREON [Suspect]
     Active Substance: EXENATIDE
     Route: 042
  5. BYETTA [Suspect]
     Active Substance: EXENATIDE
  6. BYETTA [Suspect]
     Active Substance: EXENATIDE
     Route: 042
  7. BYETTA [Suspect]
     Active Substance: EXENATIDE
  8. BYETTA [Suspect]
     Active Substance: EXENATIDE
     Route: 042

REACTIONS (4)
  - Device leakage [Unknown]
  - Injection site scab [Unknown]
  - Injection site haemorrhage [Recovered/Resolved]
  - Drug dose omission by device [Unknown]
